FAERS Safety Report 25876294 (Version 2)
Quarter: 2025Q4

REPORT INFORMATION
  Report Type: Report from Study
  Country: MX (occurrence: MX)
  Receive Date: 20251003
  Receipt Date: 20251105
  Transmission Date: 20260118
  Serious: Yes (Death, Hospitalization)
  Sender: ABBVIE
  Company Number: MX-ABBVIE-6486184

PATIENT
  Age: 61 Year
  Sex: Female
  Weight: 84 kg

DRUGS (3)
  1. VENCLEXTA [Suspect]
     Active Substance: VENETOCLAX
     Indication: Chronic lymphocytic leukaemia
     Dosage: STARTER PACK FIRST DOSE 20 MG?DISCONTINUED IN SEPT 2025
     Route: 048
     Dates: start: 20250926
  2. IBRUTINIB [Concomitant]
     Active Substance: IBRUTINIB
     Indication: Chronic lymphocytic leukaemia
     Dosage: 140 MILLIGRAM
     Route: 048
     Dates: start: 202503
  3. IBRUTINIB [Concomitant]
     Active Substance: IBRUTINIB
     Indication: Chronic lymphocytic leukaemia
     Dosage: TIME INTERVAL: 0.33333333 DAYS: 140 MILLIGRAM FREQUENCY: IN THE MORNING AND TWO AT NIGHT
     Route: 048
     Dates: start: 202503

REACTIONS (3)
  - Metastatic neoplasm [Fatal]
  - Seizure [Fatal]
  - Nervous system disorder [Unknown]

NARRATIVE: CASE EVENT DATE: 20250927
